FAERS Safety Report 21289154 (Version 1)
Quarter: 2022Q3

REPORT INFORMATION
  Report Type: Spontaneous
  Country: US (occurrence: US)
  Receive Date: 20220902
  Receipt Date: 20220902
  Transmission Date: 20221027
  Serious: No
  Sender: FDA-Public Use
  Company Number: US-ABBVIE-22K-163-4365216-00

PATIENT
  Sex: Female

DRUGS (4)
  1. VENCLEXTA [Interacting]
     Active Substance: VENETOCLAX
     Indication: Primary amyloidosis
     Route: 048
  2. VENCLEXTA [Interacting]
     Active Substance: VENETOCLAX
     Dosage: DOE REDUCED
     Route: 048
  3. VENCLEXTA [Interacting]
     Active Substance: VENETOCLAX
     Dosage: DOSE REDUCED
     Route: 048
  4. AMIODARONE [Interacting]
     Active Substance: AMIODARONE
     Indication: Product used for unknown indication
     Route: 065

REACTIONS (2)
  - Nausea [Unknown]
  - Drug interaction [Unknown]
